FAERS Safety Report 11800152 (Version 1)
Quarter: 2015Q4

REPORT INFORMATION
  Report Type: Spontaneous
  Country: US (occurrence: US)
  Receive Date: 20151203
  Receipt Date: 20151203
  Transmission Date: 20160305
  Serious: No
  Sender: FDA-Public Use
  Company Number: US-SHIRE-US201515783

PATIENT
  Sex: Female
  Weight: 55 kg

DRUGS (2)
  1. FOSRENOL [Suspect]
     Active Substance: LANTHANUM CARBONATE
     Indication: CHRONIC KIDNEY DISEASE
     Dosage: 1000 MG, 3X/DAY:TID
     Route: 048
     Dates: start: 201510
  2. RENVELA [Concomitant]
     Active Substance: SEVELAMER CARBONATE
     Indication: CHRONIC KIDNEY DISEASE
     Dosage: 800 MG, OTHER, 3 WITH EACH MEAL
     Route: 048
     Dates: start: 201508, end: 201511

REACTIONS (3)
  - Toothache [Not Recovered/Not Resolved]
  - Product quality issue [Unknown]
  - Tooth fracture [Not Recovered/Not Resolved]

NARRATIVE: CASE EVENT DATE: 2015
